FAERS Safety Report 19959473 (Version 1)
Quarter: 2021Q4

REPORT INFORMATION
  Report Type: Report from Study
  Country: NL (occurrence: NL)
  Receive Date: 20211015
  Receipt Date: 20211015
  Transmission Date: 20220303
  Serious: Yes (Other)
  Sender: FDA-Public Use
  Company Number: NL-AMGEN-NLDSL2021097156

PATIENT
  Age: 74 Year
  Sex: Female

DRUGS (2)
  1. KYPROLIS [Suspect]
     Active Substance: CARFILZOMIB
     Indication: Plasma cell myeloma
     Dosage: 30 MILLIGRAM
     Route: 065
     Dates: start: 20210426
  2. KYPROLIS [Suspect]
     Active Substance: CARFILZOMIB
     Dosage: 20 MILLIGRAM
     Route: 065
     Dates: start: 20210526

REACTIONS (3)
  - Pancytopenia [Unknown]
  - Product prescribing error [Unknown]
  - Back pain [Unknown]

NARRATIVE: CASE EVENT DATE: 20210101
